FAERS Safety Report 5337415-3 (Version None)
Quarter: 2007Q2

REPORT INFORMATION
  Report Type: 
  Country: None (occurrence: None)
  Receive Date: 20070529
  Receipt Date: 20070522
  Transmission Date: 20071010
  Serious: Yes (Other)
  Sender: FDA-Public Use
  Company Number: US-PFIZER INC-2007041767

PATIENT
  Sex: Female
  Weight: 22.7 kg

DRUGS (25)
  1. VISTARIL (ORAL SUSP) [Suspect]
     Indication: HYPERSENSITIVITY
  2. ZYRTEC [Suspect]
     Indication: HYPERSENSITIVITY
  3. FLUCONAZOLE [Suspect]
  4. ZYVOX SUSPENSION, ORAL [Suspect]
     Indication: STAPHYLOCOCCAL INFECTION
     Dates: start: 20070501, end: 20070520
  5. AMLODIPINE [Suspect]
  6. ACYCLOVIR [Suspect]
  7. CALCIUM CHLORIDE [Suspect]
  8. CREON [Suspect]
  9. DACLIZUMAB [Suspect]
  10. ENALAPRIL MALEATE [Suspect]
  11. HYDRAMINE [Suspect]
  12. LEVAQUIN [Suspect]
     Dates: start: 20070101, end: 20070501
  13. MUPIROCIN [Suspect]
  14. NEUTRA-PHOS [Suspect]
  15. ORAPRED [Suspect]
  16. PENTAMIDINE ISETHIONATE [Suspect]
  17. PREDNISONE TAB [Suspect]
  18. PREVACID [Suspect]
  19. PROTOPIC [Suspect]
  20. ALL OTHER THERAPEUTIC PRODUCTS [Suspect]
  21. VITAMIN D [Suspect]
  22. ZANTAC [Suspect]
  23. FLINTSTONES MULTIPLE VITAMINS [Suspect]
  24. CYCLOSPORINE [Suspect]
  25. MAGNESIUM SULFATE [Suspect]

REACTIONS (1)
  - DERMATITIS [None]
